FAERS Safety Report 18306975 (Version 2)
Quarter: 2020Q4

REPORT INFORMATION
  Report Type: Spontaneous
  Country: JP (occurrence: JP)
  Receive Date: 20200924
  Receipt Date: 20201009
  Transmission Date: 20210113
  Serious: Yes (Other)
  Sender: FDA-Public Use
  Company Number: JP-GEHPL-2020JSU004765AA

PATIENT

DRUGS (13)
  1. OMNIPAQUE [Suspect]
     Active Substance: IOHEXOL
     Indication: CARDIAC FAILURE CONGESTIVE
  2. BUFFERIN A [Concomitant]
     Dosage: 81 MG, QD
  3. CARVEDILOL. [Concomitant]
     Active Substance: CARVEDILOL
  4. NIFEDIPINE. [Concomitant]
     Active Substance: NIFEDIPINE
  5. LANSOPRAZOLE. [Concomitant]
     Active Substance: LANSOPRAZOLE
  6. ALLOPURINOL. [Concomitant]
     Active Substance: ALLOPURINOL
  7. FLUITRAN [Concomitant]
     Active Substance: TRICHLORMETHIAZIDE
  8. HEPARIN SODIUM. [Concomitant]
     Active Substance: HEPARIN SODIUM
     Dosage: 15000 U/DAY
     Route: 041
     Dates: start: 20180930, end: 20181003
  9. EFIENT [Concomitant]
     Active Substance: PRASUGREL HYDROCHLORIDE
     Dosage: 3.75 MG, QD
     Route: 048
     Dates: start: 20181022, end: 20181104
  10. OMNIPAQUE [Suspect]
     Active Substance: IOHEXOL
     Indication: ANGIOCARDIOGRAM
     Dosage: 18 ML, SINGLE
     Route: 022
     Dates: start: 20180930, end: 20180930
  11. OMNIPAQUE [Suspect]
     Active Substance: IOHEXOL
     Indication: PERCUTANEOUS CORONARY INTERVENTION
     Dosage: 45 ML, SINGLE
     Route: 022
     Dates: start: 20181029, end: 20181029
  12. OLMETEC [Concomitant]
     Active Substance: OLMESARTAN MEDOXOMIL
  13. EFIENT [Concomitant]
     Active Substance: PRASUGREL HYDROCHLORIDE
     Dosage: 3.75 MG, QD
     Route: 048
     Dates: start: 20180930, end: 20181004

REACTIONS (2)
  - Acute kidney injury [Recovered/Resolved]
  - Pulmonary alveolar haemorrhage [Recovered/Resolved]
